FAERS Safety Report 8456685-6 (Version None)
Quarter: 2012Q2

REPORT INFORMATION
  Report Type: 
  Country: None (occurrence: None)
  Receive Date: 20120621
  Receipt Date: 20120619
  Transmission Date: 20120825
  Serious: Yes (Hospitalization, Other)
  Sender: FDA-Public Use
  Company Number: US-BAYER-2012-056156

PATIENT
  Age: 61 Year
  Sex: Male
  Weight: 78.912 kg

DRUGS (3)
  1. BETASERON [Suspect]
     Indication: RELAPSING-REMITTING MULTIPLE SCLEROSIS
     Dosage: ONE INJECTION QOD
     Dates: start: 19950911, end: 20120524
  2. ALEVE (CAPLET) [Concomitant]
     Indication: PAIN
     Dosage: 1 DF, QD
  3. IBUPROFEN (ADVIL) [Concomitant]
     Indication: PAIN
     Dosage: 1 DF, QD

REACTIONS (8)
  - PYREXIA [None]
  - FEELING ABNORMAL [None]
  - INJECTION SITE ABSCESS [None]
  - INFECTION [None]
  - CHILLS [None]
  - WOUND [None]
  - FEELING HOT [None]
  - WOUND COMPLICATION [None]
